FAERS Safety Report 6509675-4 (Version None)
Quarter: 2009Q4

REPORT INFORMATION
  Report Type: 
  Country: None (occurrence: None)
  Receive Date: 20091222
  Receipt Date: 20091210
  Transmission Date: 20100525
  Serious: Yes (Hospitalization)
  Sender: FDA-Public Use
  Company Number: SI-BAYER-200940584GPV

PATIENT
  Age: 42 Year
  Sex: Female

DRUGS (1)
  1. YARINA [Suspect]
     Indication: ORAL CONTRACEPTION
     Dosage: 1 TBL./DAY, 1 TBL. CONTAINS 3 MG/30UG (DROSPIRENON/ETINILESTRADIOL)
     Route: 048
     Dates: start: 20070101, end: 20090811

REACTIONS (3)
  - DEEP VEIN THROMBOSIS [None]
  - DIARRHOEA INFECTIOUS [None]
  - OEDEMA PERIPHERAL [None]
